FAERS Safety Report 4283752-3 (Version None)
Quarter: 2004Q1

REPORT INFORMATION
  Report Type: 
  Country: None (occurrence: None)
  Receive Date: 20040130
  Receipt Date: 20040130
  Transmission Date: 20041129
  Serious: No
  Sender: FDA-Public Use
  Company Number: None

PATIENT
  Sex: Male
  Weight: 41 kg

DRUGS (5)
  1. NUTROPIN AQ [Suspect]
     Indication: BODY HEIGHT BELOW NORMAL
     Dosage: 2.05 MG DAILY SUBCUTANEOUS
     Route: 058
     Dates: start: 19970601, end: 20031001
  2. BICITRA [Concomitant]
  3. CHLOROTHIAZIDE [Concomitant]
  4. SODIUM NEUTRAPHOS 250 MG DAILY BY MOUTH [Concomitant]
  5. CARNITINE [Concomitant]

REACTIONS (4)
  - BONE SARCOMA [None]
  - CHONDROSARCOMA [None]
  - LEG AMPUTATION [None]
  - PAIN [None]
